FAERS Safety Report 20805383 (Version 2)
Quarter: 2022Q2

REPORT INFORMATION
  Report Type: Report from Study
  Country: CA (occurrence: CA)
  Receive Date: 20220510
  Receipt Date: 20220530
  Transmission Date: 20220721
  Serious: Yes (Hospitalization, Other)
  Sender: FDA-Public Use
  Company Number: CA-BRISTOL-MYERS SQUIBB COMPANY-2022-029081

PATIENT
  Age: 63 Year
  Sex: Male
  Weight: 72 kg

DRUGS (2)
  1. OPDIVO [Suspect]
     Active Substance: NIVOLUMAB
     Indication: Pleural mesothelioma
     Route: 042
     Dates: start: 20220412
  2. YERVOY [Suspect]
     Active Substance: IPILIMUMAB
     Indication: Pleural mesothelioma
     Route: 042
     Dates: start: 20220412

REACTIONS (14)
  - Product dose omission issue [Unknown]
  - Malaise [Unknown]
  - Pulmonary oedema [Unknown]
  - Malignant neoplasm progression [Unknown]
  - Dysphonia [Unknown]
  - Throat tightness [Unknown]
  - Dysphagia [Unknown]
  - Diarrhoea [Unknown]
  - Frequent bowel movements [Unknown]
  - Dizziness [Unknown]
  - Decreased appetite [Unknown]
  - Somnolence [Unknown]
  - Fatigue [Unknown]
  - Thirst [Unknown]

NARRATIVE: CASE EVENT DATE: 20220412
